FAERS Safety Report 5029244-5 (Version None)
Quarter: 2006Q2

REPORT INFORMATION
  Report Type: 
  Country: None (occurrence: None)
  Receive Date: 20060619
  Receipt Date: 20060523
  Transmission Date: 20061013
  Serious: Yes (Other)
  Sender: FDA-Public Use
  Company Number: ES-AMGEN-UK180432

PATIENT
  Sex: Male
  Weight: 75 kg

DRUGS (11)
  1. ARANESP [Suspect]
     Indication: ANAEMIA OF MALIGNANT DISEASE
     Route: 058
     Dates: start: 20060321, end: 20060524
  2. ACYCLOVIR [Concomitant]
     Route: 048
     Dates: start: 20060321
  3. SEPTRA [Concomitant]
     Route: 065
     Dates: start: 20060321
  4. ACFOL [Concomitant]
     Route: 048
     Dates: start: 20060321
  5. BLEOMYCIN [Concomitant]
     Route: 042
     Dates: start: 20060314
  6. ETOPOSIDE [Concomitant]
     Route: 042
     Dates: start: 20060314
  7. DOXORUBICIN HYDROCHLORIDE [Concomitant]
     Route: 042
     Dates: start: 20060314
  8. CYCLOPHOSPHAMIDE [Concomitant]
     Route: 042
     Dates: start: 20060314
  9. VINCRISTINE [Concomitant]
     Route: 042
     Dates: start: 20060314
  10. PROCARBAZINE [Concomitant]
     Route: 042
     Dates: start: 20060314
  11. PREDNISONE [Concomitant]
     Route: 042
     Dates: start: 20060314

REACTIONS (2)
  - DRUG INEFFECTIVE [None]
  - SIDEROBLASTIC ANAEMIA [None]
